FAERS Safety Report 11270586 (Version 1)
Quarter: 2015Q3

REPORT INFORMATION
  Report Type: Spontaneous
  Country: CZ (occurrence: CZ)
  Receive Date: 20150714
  Receipt Date: 20150714
  Transmission Date: 20151125
  Serious: Yes (Death, Hospitalization)
  Sender: FDA-Public Use
  Company Number: PHHY2015CZ080479

PATIENT
  Age: 14 Year
  Sex: Female

DRUGS (2)
  1. METOPROLOL [Suspect]
     Active Substance: METOPROLOL
     Indication: PRODUCT USED FOR UNKNOWN INDICATION
     Dosage: 1000 MG, UNK
     Route: 065
  2. PROPAFENONE. [Interacting]
     Active Substance: PROPAFENONE
     Indication: PRODUCT USED FOR UNKNOWN INDICATION
     Dosage: 1000-3000 MG, UNK
     Route: 065

REACTIONS (10)
  - Completed suicide [Fatal]
  - Electrocardiogram QRS complex prolonged [Unknown]
  - Cardiac arrest [Recovered/Resolved]
  - Loss of consciousness [Unknown]
  - Intentional overdose [Unknown]
  - Acute kidney injury [Unknown]
  - Brain oedema [Unknown]
  - Drug interaction [Unknown]
  - Seizure [Unknown]
  - Toxicity to various agents [Unknown]
